FAERS Safety Report 6948321-2 (Version None)
Quarter: 2010Q3

REPORT INFORMATION
  Report Type: 
  Country: None (occurrence: None)
  Receive Date: 20100828
  Receipt Date: 20091211
  Transmission Date: 20110219
  Serious: No
  Sender: FDA-Public Use
  Company Number: US-ABBOTT-09P-163-0603609-00

PATIENT
  Sex: Female
  Weight: 52.664 kg

DRUGS (7)
  1. NIASPAN [Suspect]
     Indication: BLOOD CHOLESTEROL INCREASED
     Dates: start: 20090601
  2. WELCHOL [Suspect]
     Indication: PRODUCT USED FOR UNKNOWN INDICATION
     Dates: start: 20090601, end: 20091015
  3. ZETIA [Concomitant]
     Indication: BLOOD CHOLESTEROL INCREASED
  4. TEKTURNA [Concomitant]
     Indication: HYPERTENSION
  5. DETROL LA [Concomitant]
     Indication: URINARY INCONTINENCE
  6. GABAPENTIN [Concomitant]
     Indication: NEUROPATHY PERIPHERAL
  7. BYSTOLIC [Concomitant]
     Indication: HYPERTENSION

REACTIONS (4)
  - FATIGUE [None]
  - FEELING ABNORMAL [None]
  - FLUSHING [None]
  - MYALGIA [None]
